FAERS Safety Report 6900540-7 (Version None)
Quarter: 2010Q3

REPORT INFORMATION
  Report Type: 
  Country: None (occurrence: None)
  Receive Date: 20100730
  Receipt Date: 20100716
  Transmission Date: 20110219
  Serious: Yes (Other)
  Sender: FDA-Public Use
  Company Number: 201007AGG00940

PATIENT
  Sex: Male

DRUGS (1)
  1. TIROFIBAN HYDROCHLORIDE (AGGRASTAT TIROFIBAN HCL) [Suspect]
     Indication: MYOCARDIAL INFARCTION
     Dosage: 36ML/DAILY INTRAVENOUS
     Route: 042

REACTIONS (4)
  - DRUG ADMINISTRATION ERROR [None]
  - MULTI-ORGAN FAILURE [None]
  - PULMONARY HAEMORRHAGE [None]
  - SEPTIC SHOCK [None]
